FAERS Safety Report 24119666 (Version 1)
Quarter: 2024Q3

REPORT INFORMATION
  Report Type: Report from Study
  Country: KW (occurrence: KW)
  Receive Date: 20240722
  Receipt Date: 20240722
  Transmission Date: 20241016
  Serious: Yes (Other)
  Sender: BIOVITRUM
  Company Number: KW-AstraZeneca-2023A018242

PATIENT
  Age: 9 Month
  Sex: Female

DRUGS (1)
  1. SYNAGIS [Suspect]
     Active Substance: PALIVIZUMAB
     Indication: Lower respiratory tract infection
     Route: 030
     Dates: start: 20221102

REACTIONS (2)
  - Pyrexia [Unknown]
  - Eczema [Unknown]

NARRATIVE: CASE EVENT DATE: 20230101
